FAERS Safety Report 8032775 (Version 2)
Quarter: 2012Q4

REPORT INFORMATION
  Report Type: 
  Country: US (occurrence: US)
  Receive Date: 20110713
  Receipt Date: 20121221
  Transmission Date: 20130627
  Serious: Yes (Hospitalization, Other)
  Sender: FDA-Public Use
  Company Number: US-ELI_LILLY_AND_COMPANY-US201107002489

PATIENT
  Age: 55 Year
  Sex: Female

DRUGS (9)
  1. BYETTA [Suspect]
     Dosage: 10 ug, bid
     Route: 058
     Dates: start: 20090528, end: 20090616
  2. LISINOPRIL [Concomitant]
     Dosage: 20 mg, qd
     Route: 048
  3. METFORMIN [Concomitant]
     Dosage: 1 g, bid
     Route: 048
  4. METOPROLOL TARTRATE [Concomitant]
     Dosage: 25 mg, bid
     Route: 048
  5. SIMVASTATIN [Concomitant]
     Dosage: 40 mg, qd
     Route: 048
  6. NOVOLOG [Concomitant]
     Dosage: 4 u, tid
  7. TRILIPIX [Concomitant]
     Dosage: 135 mg, qd
     Route: 048
  8. ASPIRIN [Concomitant]
     Dosage: 81 mg, qd
     Route: 048
  9. LANTUS [Concomitant]
     Dosage: 39 u, each evening

REACTIONS (1)
  - Pancreatitis acute [Recovered/Resolved]
